FAERS Safety Report 8020395-X (Version None)
Quarter: 2012Q1

REPORT INFORMATION
  Report Type: 
  Country: None (occurrence: None)
  Receive Date: 20120103
  Receipt Date: 20111221
  Transmission Date: 20120608
  Serious: Yes (Hospitalization, Other)
  Sender: FDA-Public Use
  Company Number: US-ELI_LILLY_AND_COMPANY-US201110006568

PATIENT
  Sex: Female
  Weight: 51.247 kg

DRUGS (32)
  1. HYDROCODONE BITARTRATE AND ACETAMINOPHEN [Concomitant]
     Dosage: UNK, EVERY 4 HRS
     Route: 048
  2. ALBUTEROL SULFATE [Concomitant]
     Dosage: UNK, EVERY 2 HRS
  3. DIGOXIN [Concomitant]
     Dosage: 0.125 MG, QD
     Route: 048
  4. FLUTICASONE PROPIONATE W/SALMETEROL [Concomitant]
     Dosage: UNK, BID
     Route: 045
  5. PANTOPRAZOLE [Concomitant]
     Dosage: 40 MG, QD
     Route: 048
  6. SIMVASTATIN [Concomitant]
     Dosage: 40 MG, QD
     Route: 048
  7. LACTOBACILLUS ACIDOPHILUS [Concomitant]
     Dosage: UNK, BID
     Route: 048
  8. VITAMIN D [Concomitant]
     Dosage: 5000 IU, QD
     Route: 048
  9. DOCUSATE SODIUM [Concomitant]
     Dosage: 100 MG, QD
     Route: 048
  10. GUAIFENESIN [Concomitant]
     Dosage: 600 MG, BID
     Route: 048
  11. THERA-M [Concomitant]
     Dosage: UNK, QD
     Route: 048
  12. WARFARIN SODIUM [Concomitant]
     Dosage: 5 MG, QD
     Route: 048
  13. MAGNESIUM HYDROXIDE TAB [Concomitant]
     Dosage: 1200 MG, PRN
     Route: 048
  14. NITROGLYCERIN [Concomitant]
     Indication: CHEST PAIN
     Dosage: 0.4 MG, PRN
     Route: 060
  15. VITAMIN B COMPLEX CAP [Concomitant]
     Dosage: UNK, QD
  16. METOPROLOL TARTRATE [Concomitant]
     Dosage: 25 MG, BID
  17. FORTEO [Suspect]
     Dosage: 20 UG, QD
     Route: 065
  18. CORAL CALCIUM [Concomitant]
     Dosage: 1000 MG, QD
     Route: 048
  19. FLUOXETINE [Concomitant]
     Dosage: 20 MG, QD
  20. FUROSEMIDE [Concomitant]
     Dosage: 40 MG, QD
     Route: 048
  21. IPRATROPIUM BROMIDE [Concomitant]
     Dosage: 500 UG, EVERY 4 HRS
     Route: 045
  22. LORATADINE [Concomitant]
     Dosage: 10 MG, QD
     Route: 048
  23. LORAZEPAM [Concomitant]
     Indication: ANXIETY
     Dosage: 0.5 MG, EVERY 6 HRS
     Route: 048
  24. POLYETHYLENE GLYCOL [Concomitant]
     Dosage: 17 G, QD
     Route: 048
  25. POTASSIUM CHLORIDE [Concomitant]
     Dosage: 20 MEQ, QD
     Route: 048
  26. PROCHLORPERAZINE MALEATE [Concomitant]
     Dosage: 5 MG, BID
     Route: 048
  27. FORTEO [Suspect]
     Indication: OSTEOPOROSIS POSTMENOPAUSAL
     Dosage: 20 UG, QD
     Route: 065
     Dates: start: 20110901
  28. ACETAMINOPHEN [Concomitant]
     Indication: PAIN
     Dosage: 650 MG, EVERY 4 HRS
     Route: 048
  29. CEFTRIAXONE [Concomitant]
     Dosage: 1 G, QD
     Route: 042
  30. FENTANYL [Concomitant]
     Dosage: 50 UG, EVERY HOUR
     Route: 062
  31. NYSTATIN [Concomitant]
     Dosage: 5 ML, OTHER
     Route: 048
  32. OXCARBAZEPINE [Concomitant]
     Dosage: 150 MG, QD
     Route: 048

REACTIONS (12)
  - PNEUMONIA [None]
  - FALL [None]
  - FEMUR FRACTURE [None]
  - BLOOD GLUCOSE INCREASED [None]
  - IMMUNOSUPPRESSION [None]
  - VOMITING [None]
  - HIP FRACTURE [None]
  - OSTEONECROSIS [None]
  - UPPER RESPIRATORY TRACT INFECTION [None]
  - OSTEOARTHRITIS [None]
  - DIARRHOEA [None]
  - CHRONIC OBSTRUCTIVE PULMONARY DISEASE [None]
